FAERS Safety Report 21968554 (Version 1)
Quarter: 2023Q1

REPORT INFORMATION
  Report Type: Spontaneous
  Country: US (occurrence: None)
  Receive Date: 20230207
  Receipt Date: 20230207
  Transmission Date: 20230417
  Serious: Yes (Other)
  Sender: FDA-Public Use
  Company Number: None

PATIENT
  Age: 18 Year
  Sex: Male
  Weight: 89.1 kg

DRUGS (1)
  1. CELEXA [Suspect]
     Active Substance: CITALOPRAM HYDROBROMIDE
     Indication: Depression
     Dosage: OTHER QUANTITY : 1 TABLET(S);?FREQUENCY : DAILY;?
     Route: 048
     Dates: start: 20190724, end: 20221122

REACTIONS (9)
  - Sexual dysfunction [None]
  - Cognitive disorder [None]
  - Anorgasmia [None]
  - Erectile dysfunction [None]
  - Ejaculation disorder [None]
  - Depersonalisation/derealisation disorder [None]
  - Feeling abnormal [None]
  - Memory impairment [None]
  - Anhedonia [None]

NARRATIVE: CASE EVENT DATE: 20221122
